FAERS Safety Report 11558508 (Version 2)
Quarter: 2015Q4

REPORT INFORMATION
  Report Type: Report from Study
  Country: DE (occurrence: DE)
  Receive Date: 20150928
  Receipt Date: 20151019
  Transmission Date: 20160304
  Serious: Yes (Hospitalization)
  Sender: FDA-Public Use
  Company Number: DE-ROCHE-1637745

PATIENT
  Age: 43 Year
  Sex: Female
  Weight: 52.5 kg

DRUGS (9)
  1. RO 5479599 (ANTI-HER3 MAB) [Suspect]
     Active Substance: LUMRETUZUMAB
     Indication: BREAST CANCER METASTATIC
     Dosage: MOST RECENT DOSE PRIOR TO SAE: 03/SEP/2015?DRUG TEMPORARILY INTERRUPTED ON 22/SEP/2015
     Route: 042
     Dates: start: 20150408, end: 20150922
  2. DENOSUMAB [Concomitant]
     Active Substance: DENOSUMAB
     Route: 065
     Dates: start: 20150522
  3. LOPERAMIDE [Concomitant]
     Active Substance: LOPERAMIDE
     Route: 065
     Dates: start: 20150409
  4. PERTUZUMAB [Suspect]
     Active Substance: PERTUZUMAB
     Dosage: MAINTENANCE DOSE?MOST RECENT DOSE PRIOR TO SAE: 03/SEP/2015?DRUG TEMPORARILY INTERRUPTED ON 22/SEP/2
     Route: 042
     Dates: start: 20150430, end: 20150922
  5. PERTUZUMAB [Suspect]
     Active Substance: PERTUZUMAB
     Route: 042
     Dates: start: 20151008
  6. PACLITAXEL. [Suspect]
     Active Substance: PACLITAXEL
     Indication: BREAST CANCER METASTATIC
     Dosage: MOST RECENT DOSE PRIOR TO SAE: 06/AUG/2015
     Route: 042
     Dates: start: 20150408
  7. L-THYROXINE [Concomitant]
     Active Substance: LEVOTHYROXINE
     Route: 065
     Dates: start: 201505
  8. RO 5479599 (ANTI-HER3 MAB) [Suspect]
     Active Substance: LUMRETUZUMAB
     Route: 042
     Dates: start: 20151008
  9. PERTUZUMAB [Suspect]
     Active Substance: PERTUZUMAB
     Indication: BREAST CANCER METASTATIC
     Dosage: LOADING DOSE
     Route: 042
     Dates: start: 20150408

REACTIONS (1)
  - Herpes zoster [Recovering/Resolving]

NARRATIVE: CASE EVENT DATE: 20150914
